FAERS Safety Report 6842991-5 (Version None)
Quarter: 2010Q3

REPORT INFORMATION
  Report Type: 
  Country: None (occurrence: None)
  Receive Date: 20100714
  Receipt Date: 20080130
  Transmission Date: 20110219
  Serious: No
  Sender: FDA-Public Use
  Company Number: US-PFIZER INC-2007066133

PATIENT
  Sex: Female
  Weight: 74.8 kg

DRUGS (9)
  1. CHANTIX [Suspect]
     Indication: SMOKING CESSATION THERAPY
     Route: 048
     Dates: start: 20070803, end: 20070806
  2. AMITRIPTYLINE HYDROCHLORIDE [Concomitant]
  3. EFFEXOR [Concomitant]
  4. DITROPAN [Concomitant]
  5. CALCIUM [Concomitant]
  6. FLEXERIL [Concomitant]
  7. KLONOPIN [Concomitant]
  8. TRAZODONE HYDROCHLORIDE [Concomitant]
  9. VITAMINS [Concomitant]

REACTIONS (1)
  - GLOSSODYNIA [None]
